FAERS Safety Report 5867809-9 (Version None)
Quarter: 2008Q3

REPORT INFORMATION
  Report Type: 
  Country: None (occurrence: None)
  Receive Date: 20080902
  Receipt Date: 20080821
  Transmission Date: 20090109
  Serious: Yes (Life-Threatening, Hospitalization, Other)
  Sender: FDA-Public Use
  Company Number: GB-PFIZER INC-2008007601

PATIENT
  Age: 49 Year
  Sex: Female

DRUGS (4)
  1. SERTRALINE [Suspect]
  2. ACETAMINOPHEN [Suspect]
     Route: 048
  3. RISPERIDONE [Suspect]
  4. ACETAMINOPHEN W/ PROPOXYPHENE HCL [Suspect]

REACTIONS (6)
  - ACUTE HEPATIC FAILURE [None]
  - BRAIN OEDEMA [None]
  - HEPATIC ENCEPHALOPATHY [None]
  - OVERDOSE [None]
  - PULMONARY OEDEMA [None]
  - URINE OUTPUT DECREASED [None]
